FAERS Safety Report 14999085 (Version 1)
Quarter: 2018Q2

REPORT INFORMATION
  Report Type: Report from Study
  Country: US (occurrence: US)
  Receive Date: 20180612
  Receipt Date: 20180612
  Transmission Date: 20180711
  Serious: Yes (Death)
  Sender: FDA-Public Use
  Company Number: US-ASTELLAS-2018US008649

PATIENT
  Age: 78 Year
  Sex: Male

DRUGS (1)
  1. ENZALUTAMIDE [Suspect]
     Active Substance: ENZALUTAMIDE
     Indication: HORMONE-REFRACTORY PROSTATE CANCER
     Route: 048
     Dates: start: 20180220

REACTIONS (7)
  - Death [Fatal]
  - Malaise [Unknown]
  - Disorientation [Unknown]
  - Dizziness [Unknown]
  - Asthenia [Unknown]
  - Overdose [Unknown]
  - Product supply issue [Unknown]

NARRATIVE: CASE EVENT DATE: 20180222
